FAERS Safety Report 13161309 (Version 1)
Quarter: 2017Q1

REPORT INFORMATION
  Report Type: Report from Study
  Country: FR (occurrence: FR)
  Receive Date: 20170130
  Receipt Date: 20170130
  Transmission Date: 20170428
  Serious: Yes (Disabling, Other)
  Sender: FDA-Public Use
  Company Number: FR-ROCHE-1416220

PATIENT

DRUGS (4)
  1. EPOETIN BETA [Suspect]
     Active Substance: ERYTHROPOIETIN
     Indication: PRODUCT USED FOR UNKNOWN INDICATION
     Route: 065
  2. RANIBIZUMAB [Suspect]
     Active Substance: RANIBIZUMAB
     Indication: PRODUCT USED FOR UNKNOWN INDICATION
     Route: 050
  3. PEG-INTERFERON ALFA 2A [Suspect]
     Active Substance: PEGINTERFERON ALFA-2A
     Indication: PRODUCT USED FOR UNKNOWN INDICATION
     Route: 065
  4. RIBAVIRIN. [Suspect]
     Active Substance: RIBAVIRIN
     Indication: PRODUCT USED FOR UNKNOWN INDICATION
     Route: 065

REACTIONS (13)
  - Corneal disorder [Unknown]
  - Retinal disorder [Unknown]
  - Retinal artery occlusion [Unknown]
  - Visual acuity reduced [Unknown]
  - Macular oedema [Unknown]
  - Visual field defect [Unknown]
  - Retinal pigment epithelial tear [Unknown]
  - Blindness [Unknown]
  - Sight disability [Unknown]
  - Retinal detachment [Unknown]
  - Retinopathy [Unknown]
  - Chorioretinopathy [Unknown]
  - Angiopathy [Unknown]
